FAERS Safety Report 15367240 (Version 1)
Quarter: 2018Q3

REPORT INFORMATION
  Report Type: Spontaneous
  Country: US (occurrence: US)
  Receive Date: 20180903
  Receipt Date: 20180903
  Transmission Date: 20181010
  Serious: Yes (Disabling)
  Sender: FDA-Public Use
  Company Number: None

PATIENT
  Age: 65 Year
  Sex: Female
  Weight: 86.4 kg

DRUGS (7)
  1. VITAMIN C [Concomitant]
     Active Substance: ASCORBIC ACID
  2. TYLENOL [Concomitant]
     Active Substance: ACETAMINOPHEN
  3. MELOXICAM. [Suspect]
     Active Substance: MELOXICAM
     Indication: ARTHRALGIA
     Dosage: ?          QUANTITY:1 DF DOSAGE FORM;?
     Route: 048
     Dates: start: 20180213, end: 20180510
  4. BACLOFEN. [Concomitant]
     Active Substance: BACLOFEN
  5. ADVIL [Concomitant]
     Active Substance: IBUPROFEN
  6. ATENOLOL. [Concomitant]
     Active Substance: ATENOLOL
  7. MELOXICAM. [Suspect]
     Active Substance: MELOXICAM
     Indication: ARTHRITIS
     Dosage: ?          QUANTITY:1 DF DOSAGE FORM;?
     Route: 048
     Dates: start: 20180213, end: 20180510

REACTIONS (3)
  - Pain in jaw [None]
  - Neck pain [None]
  - Toothache [None]

NARRATIVE: CASE EVENT DATE: 20180425
